FAERS Safety Report 7715710-8 (Version None)
Quarter: 2011Q3

REPORT INFORMATION
  Report Type: 
  Country: None (occurrence: None)
  Receive Date: 20110829
  Receipt Date: 20110825
  Transmission Date: 20111222
  Serious: Yes (Hospitalization, Other)
  Sender: FDA-Public Use
  Company Number: US-PFIZER INC-2010092631

PATIENT
  Sex: Female
  Weight: 63.946 kg

DRUGS (26)
  1. BENICAR [Interacting]
     Indication: HYPERTENSION
     Dosage: UNK
  2. AVAPRO [Interacting]
     Indication: HYPERTENSION
     Dosage: UNK
  3. VALSARTAN [Interacting]
     Dosage: UNK
  4. LEVOTHYROXINE SODIUM [Concomitant]
  5. FUROSEMIDE [Interacting]
     Dosage: UNK
  6. HYDROCHLOROTHIAZIDE [Interacting]
     Dosage: UNK
  7. LOSARTAN POTASSIUM [Interacting]
     Dosage: UNK
  8. LISINOPRIL [Interacting]
     Dosage: UNK
  9. NEBIVOLOL HCL [Interacting]
     Dosage: UNK
  10. REGLAN [Interacting]
     Dosage: UNK
  11. FUROSEMIDE [Interacting]
  12. CLONIDINE [Concomitant]
     Indication: BLOOD PRESSURE ABNORMAL
     Dosage: 0.5 MG, 3X/DAY
     Route: 048
  13. DILANTIN [Interacting]
     Dosage: UNK
     Dates: start: 19960101
  14. XANAX [Interacting]
     Indication: PRODUCT USED FOR UNKNOWN INDICATION
     Dosage: 1/2 TABLET QD
  15. ATACAND [Interacting]
     Dosage: 32 MG, 1X/DAY
  16. ATACAND [Interacting]
     Dosage: 32 MG, UNK
  17. NORVASC [Interacting]
     Indication: HYPERTENSION
     Dosage: 2.5 MG, 1X/DAY
     Dates: start: 19950101
  18. NORVASC [Interacting]
     Dosage: 5 MG, 2X/DAY
     Dates: start: 20100101
  19. MACROBID [Interacting]
     Dosage: UNK
  20. CIPROFLOXACIN [Interacting]
     Dosage: UNK
  21. LEVAQUIN [Interacting]
     Dosage: UNK
  22. LIDOCAINE HCL [Suspect]
     Indication: INGROWING NAIL
     Dates: start: 20100513, end: 20100513
  23. NORVASC [Interacting]
     Dosage: 5 MG,DAILY
     Dates: start: 19970101
  24. CARDIZEM [Interacting]
     Dosage: UNK
  25. DEPAKOTE [Interacting]
     Indication: CONVULSION
     Dosage: UNK
     Dates: start: 19960101
  26. BACTRIM [Interacting]
     Dosage: UNK

REACTIONS (15)
  - ARTERIOGRAM CORONARY ABNORMAL [None]
  - BLOOD COUNT ABNORMAL [None]
  - FULL BLOOD COUNT DECREASED [None]
  - CHOLECYSTECTOMY [None]
  - GASTRIC DISORDER [None]
  - BURNING SENSATION [None]
  - WEIGHT DECREASED [None]
  - CYSTITIS [None]
  - HEADACHE [None]
  - INGROWING NAIL [None]
  - DIZZINESS [None]
  - HYPERTENSION [None]
  - LOSS OF CONSCIOUSNESS [None]
  - TOE OPERATION [None]
  - PALPITATIONS [None]
